FAERS Safety Report 8852251 (Version 1)
Quarter: 2012Q4

REPORT INFORMATION
  Report Type: 
  Country: US (occurrence: US)
  Receive Date: 20121022
  Receipt Date: 20121022
  Transmission Date: 20130627
  Serious: No
  Sender: FDA-Public Use
  Company Number: US-MYLANLABS-2012S1002719

PATIENT
  Age: 59 Year
  Sex: Female

DRUGS (13)
  1. CARVEDILOL [Suspect]
     Indication: HYPERTENSION
     Route: 048
     Dates: start: 201201
  2. CARVEDILOL [Suspect]
     Indication: HYPERTENSION
     Route: 048
     Dates: start: 201201
  3. ALPRAZOLAM [Concomitant]
     Route: 048
  4. LAMICTAL [Concomitant]
     Route: 048
  5. TEGRETOL XR [Concomitant]
     Route: 048
  6. PRILOSEC [Concomitant]
  7. LEVOTHYROXINE [Concomitant]
     Route: 048
  8. CYMBALTA [Concomitant]
     Route: 048
  9. AMBIEN [Concomitant]
     Route: 048
  10. ASPIRIN [Concomitant]
  11. VITAMINS [Concomitant]
  12. GLUCOSAMINE [Concomitant]
  13. FLAX SEED OIL [Concomitant]

REACTIONS (4)
  - Decreased appetite [Not Recovered/Not Resolved]
  - Thirst [Not Recovered/Not Resolved]
  - Hyperhidrosis [Not Recovered/Not Resolved]
  - Oropharyngeal pain [Not Recovered/Not Resolved]
